FAERS Safety Report 5395616-2 (Version None)
Quarter: 2007Q3

REPORT INFORMATION
  Report Type: 
  Country: None (occurrence: None)
  Receive Date: 20070720
  Receipt Date: 20070713
  Transmission Date: 20080115
  Serious: Yes (Death)
  Sender: FDA-Public Use
  Company Number: TCI2007A03468

PATIENT
  Age: 58 Year
  Sex: Male

DRUGS (3)
  1. ACTOS [Suspect]
     Indication: DIABETES MELLITUS
     Dosage: 15 MG (15 MG. 1 D) PER ORAL
     Route: 048
     Dates: start: 20050623, end: 20050625
  2. ASPIRIN [Concomitant]
  3. TICLOPIDINE HCL [Concomitant]

REACTIONS (2)
  - SYNCOPE [None]
  - VENTRICULAR FIBRILLATION [None]
